FAERS Safety Report 5672263-6 (Version None)
Quarter: 2008Q1

REPORT INFORMATION
  Report Type: 
  Country: None (occurrence: None)
  Receive Date: 20080317
  Receipt Date: 20080307
  Transmission Date: 20080703
  Serious: Yes (Death)
  Sender: FDA-Public Use
  Company Number: 2008SP004909

PATIENT
  Sex: Male

DRUGS (1)
  1. INTEGRILIN [Suspect]
     Indication: DRUG USE FOR UNKNOWN INDICATION
     Dates: start: 20060301, end: 20060301

REACTIONS (2)
  - ILL-DEFINED DISORDER [None]
  - MALAISE [None]
